FAERS Safety Report 8283536-5 (Version None)
Quarter: 2012Q2

REPORT INFORMATION
  Report Type: 
  Country: None (occurrence: None)
  Receive Date: 20120413
  Receipt Date: 20120405
  Transmission Date: 20120825
  Serious: No
  Sender: FDA-Public Use
  Company Number: JP-B.I. PHARMACEUTICALS,INC./RIDGEFIELD-2012-BP-04450NB

PATIENT

DRUGS (1)
  1. SPIRIVA [Suspect]
     Dosage: 2 PUF
     Route: 055

REACTIONS (1)
  - NO ADVERSE EVENT [None]
